FAERS Safety Report 19426647 (Version 1)
Quarter: 2021Q2

REPORT INFORMATION
  Report Type: Spontaneous
  Country: US (occurrence: US)
  Receive Date: 20210617
  Receipt Date: 20210617
  Transmission Date: 20210717
  Serious: Yes (Hospitalization, Other)
  Sender: FDA-Public Use
  Company Number: US-AUROBINDO-AUR-APL-2021-025221

PATIENT
  Age: 5 Month
  Sex: Female
  Weight: 2.6 kg

DRUGS (10)
  1. GLYCOPYRROLATE. [Concomitant]
     Active Substance: GLYCOPYRROLATE
     Indication: PRODUCT USED FOR UNKNOWN INDICATION
     Dosage: 30 MILLIGRAM/KILOGRAM, TWO TIMES A DAY
     Route: 065
  2. ASPIRINE [Suspect]
     Active Substance: ASPIRIN
     Indication: NECROSIS
     Dosage: UNK (DAY?OF?LIFE 157)
     Route: 065
  3. ONASEMNOGENE ABEPARVOVEC [Concomitant]
     Active Substance: ONASEMNOGENE ABEPARVOVEC
     Indication: SPINAL MUSCULAR ATROPHY
     Dosage: UNK (ON DAY?OF?LIFE 114)
     Route: 065
  4. AMLODIPINE [Concomitant]
     Active Substance: AMLODIPINE BESYLATE
     Indication: PRODUCT USED FOR UNKNOWN INDICATION
     Dosage: UNK
     Route: 065
  5. ENOXAPARIN SODIUM. [Concomitant]
     Active Substance: ENOXAPARIN SODIUM
     Indication: PRODUCT USED FOR UNKNOWN INDICATION
     Dosage: UNK (ON DAY?OF?LIFE 198)
     Route: 065
  6. NUSINERSEN [Concomitant]
     Active Substance: NUSINERSEN
     Indication: SPINAL MUSCULAR ATROPHY
     Dosage: UNK (AT DAY?OF?LIFE 14)
     Route: 065
  7. PREDNISOLONE. [Concomitant]
     Active Substance: PREDNISOLONE
     Indication: PRODUCT USED FOR UNKNOWN INDICATION
     Dosage: UNK
     Route: 065
  8. SILDENAFIL. [Suspect]
     Active Substance: SILDENAFIL
     Indication: NECROSIS
     Dosage: UNK
     Route: 065
  9. OMEPRAZOLE. [Concomitant]
     Active Substance: OMEPRAZOLE
     Indication: PEPTIC ULCER
     Dosage: UNK
     Route: 065
  10. VITAMIN D [Concomitant]
     Active Substance: VITAMIN D NOS
     Indication: PRODUCT USED FOR UNKNOWN INDICATION
     Dosage: UNK
     Route: 065

REACTIONS (1)
  - Drug ineffective for unapproved indication [Unknown]
